FAERS Safety Report 23409000 (Version 1)
Quarter: 2024Q1

REPORT INFORMATION
  Report Type: Spontaneous
  Country: US (occurrence: None)
  Receive Date: 20240115
  Receipt Date: 20240115
  Transmission Date: 20240409
  Serious: No
  Sender: FDA-Public Use
  Company Number: None

PATIENT

DRUGS (2)
  1. NEOSTIGMINE METHYLSULFATE [Suspect]
     Active Substance: NEOSTIGMINE METHYLSULFATE
     Route: 042
  2. STERILE WATER FOR IRRIGATION [Suspect]
     Active Substance: WATER

REACTIONS (4)
  - Product barcode issue [None]
  - Product label confusion [None]
  - Product packaging confusion [None]
  - Product commingling [None]
